FAERS Safety Report 9581125 (Version 4)
Quarter: 2014Q2

REPORT INFORMATION
  Report Type: Spontaneous
  Country: US (occurrence: US)
  Receive Date: 20131002
  Receipt Date: 20140425
  Transmission Date: 20141212
  Serious: Yes (Hospitalization, Other)
  Sender: FDA-Public Use
  Company Number: US-GLAXOSMITHKLINE-A1043275A

PATIENT
  Age: 37 Year
  Sex: Female

DRUGS (10)
  1. BENLYSTA [Suspect]
     Indication: SYSTEMIC LUPUS ERYTHEMATOSUS
     Dosage: 120MG SEE DOSAGE TEXT
     Route: 042
     Dates: start: 20111201
  2. PREDNISONE [Suspect]
     Indication: PRODUCT USED FOR UNKNOWN INDICATION
  3. NORVASC [Concomitant]
  4. BENAZEPRIL [Concomitant]
  5. LASIX [Concomitant]
  6. POTASSIUM [Concomitant]
  7. AMBIEN [Concomitant]
  8. HYDROCODONE [Concomitant]
  9. PLAQUENIL [Concomitant]
  10. SOLUMEDROL [Concomitant]

REACTIONS (19)
  - Pneumonia [Unknown]
  - Cutaneous lupus erythematosus [Unknown]
  - Nasopharyngitis [Unknown]
  - Inappropriate schedule of drug administration [Unknown]
  - Scar [Unknown]
  - Rash [Unknown]
  - Blister [Unknown]
  - Weight decreased [Unknown]
  - Weight increased [Unknown]
  - Alopecia [Unknown]
  - Skin disorder [Unknown]
  - Viral infection [Unknown]
  - Pyrexia [Unknown]
  - Malaise [Unknown]
  - Amenorrhoea [Unknown]
  - Postmenopause [Unknown]
  - Pain of skin [Unknown]
  - Erythema [Unknown]
  - Liver function test abnormal [Unknown]
